FAERS Safety Report 8312017-5 (Version None)
Quarter: 2012Q1

REPORT INFORMATION
  Report Type: 
  Country: None (occurrence: None)
  Receive Date: 20120315
  Receipt Date: 20110429
  Transmission Date: 20120608
  Serious: Yes (Other)
  Sender: FDA-Public Use
  Company Number: PHHY2011US30377

PATIENT
  Age: 47 Year
  Sex: Female

DRUGS (5)
  1. NEXIUM [Concomitant]
  2. VENTOLIN [Concomitant]
  3. ACE INHIBITOR NOS (NO INGREDIENTS/SUBSTANCES) [Concomitant]
  4. GILENYA [Suspect]
     Indication: MULTIPLE SCLEROSIS
     Dosage: 0.5 MG, DAILY, ORAL
     Route: 048
     Dates: start: 20110309
  5. LAMOTRIGINE [Concomitant]

REACTIONS (4)
  - DIARRHOEA [None]
  - COUGH [None]
  - ABDOMINAL PAIN [None]
  - INSOMNIA [None]
